FAERS Safety Report 5113597-3 (Version None)
Quarter: 2006Q3

REPORT INFORMATION
  Report Type: 
  Country: None (occurrence: None)
  Receive Date: 20060920
  Receipt Date: 20060904
  Transmission Date: 20061208
  Serious: Yes (Other)
  Sender: FDA-Public Use
  Company Number: DE200609000886

PATIENT
  Age: 22 Year
  Sex: Male

DRUGS (1)
  1. ZYPREXA [Suspect]
     Indication: SCHIZOPHRENIA
     Dosage: 20 MG, DAILY (1/D), ORAL
     Route: 048
     Dates: start: 20040812, end: 20040816

REACTIONS (4)
  - EATING DISORDER [None]
  - ILEUS PARALYTIC [None]
  - PARANOIA [None]
  - TREATMENT NONCOMPLIANCE [None]
